FAERS Safety Report 8546962 (Version 2)
Quarter: 2012Q4

REPORT INFORMATION
  Report Type: Report from Study
  Country: MX (occurrence: MX)
  Receive Date: 20120504
  Receipt Date: 20121210
  Transmission Date: 20130627
  Serious: Yes (Hospitalization)
  Sender: FDA-Public Use
  Company Number: MX-ROCHE-1064411

PATIENT
  Age: 78 Year
  Sex: Female
  Weight: 60 kg

DRUGS (3)
  1. TRASTUZUMAB [Suspect]
     Indication: BREAST CANCER
     Route: 042
     Dates: start: 20120216
  2. KETOROLAC [Concomitant]
     Indication: PAIN
     Route: 048
     Dates: start: 20120424
  3. SULFAMETHOXAZOLE/TRIMETHOPRIM [Concomitant]
     Route: 048
     Dates: start: 20120424

REACTIONS (4)
  - Intestinal obstruction [Recovered/Resolved]
  - Fall [Unknown]
  - Vomiting [Unknown]
  - Gastrointestinal hypomotility [Recovering/Resolving]
